FAERS Safety Report 9516802 (Version 2)
Quarter: 2013Q3

REPORT INFORMATION
  Report Type: Report from Study
  Country: DE (occurrence: DE)
  Receive Date: 20130911
  Receipt Date: 20130911
  Transmission Date: 20140515
  Serious: Yes (Hospitalization)
  Sender: FDA-Public Use
  Company Number: DE-INCYTE CORPORATION-2013IN001709

PATIENT
  Sex: 0

DRUGS (6)
  1. LBH589 [Suspect]
     Indication: MYELOFIBROSIS
     Dosage: 25 MG, TIW
     Route: 048
     Dates: start: 20130718
  2. LBH589 [Suspect]
     Dosage: 25 MG, TIW
     Route: 048
     Dates: start: 20130731, end: 20130804
  3. INC424 [Suspect]
     Indication: MYELOFIBROSIS
     Dosage: 30 MG, UNK
     Route: 048
     Dates: start: 20130717, end: 20130807
  4. ASS [Concomitant]
     Dosage: UNK
  5. PANTOPRAZOL [Concomitant]
     Dosage: UNK
  6. OBSIDAN [Concomitant]
     Dosage: UNK

REACTIONS (4)
  - Enteritis [Recovering/Resolving]
  - Streptococcal sepsis [Recovered/Resolved]
  - Sinusitis [Recovered/Resolved]
  - Thrombocytopenia [Unknown]
